FAERS Safety Report 12769772 (Version 2)
Quarter: 2016Q4

REPORT INFORMATION
  Report Type: Spontaneous
  Country: DE (occurrence: DE)
  Receive Date: 20160922
  Receipt Date: 20161207
  Transmission Date: 20170207
  Serious: Yes (Hospitalization)
  Sender: FDA-Public Use
  Company Number: DE-SHIRE-DE201612785

PATIENT
  Sex: Female

DRUGS (2)
  1. REVESTIVE [Suspect]
     Active Substance: TEDUGLUTIDE
     Indication: PRODUCT USED FOR UNKNOWN INDICATION
     Dosage: 3 ML, UNKNOWN
     Route: 058
  2. REVESTIVE [Suspect]
     Active Substance: TEDUGLUTIDE
     Dosage: UNK
     Route: 058

REACTIONS (2)
  - Adverse drug reaction [Unknown]
  - Malaise [Unknown]
